FAERS Safety Report 22392930 (Version 1)
Quarter: 2023Q2

REPORT INFORMATION
  Report Type: Spontaneous
  Country: US (occurrence: US)
  Receive Date: 20230601
  Receipt Date: 20230601
  Transmission Date: 20230721
  Serious: No
  Sender: FDA-Public Use
  Company Number: US-LEO Pharma-352271

PATIENT
  Age: 32 Year
  Sex: Female

DRUGS (6)
  1. METRONIDAZOLE [Suspect]
     Active Substance: METRONIDAZOLE
     Indication: Psoriasis
  2. TRIAMCINOLONE [Suspect]
     Active Substance: TRIAMCINOLONE
     Indication: Psoriasis
  3. CLOBETASOL [Suspect]
     Active Substance: CLOBETASOL
     Indication: Psoriasis
  4. AZELAIC ACID [Suspect]
     Active Substance: AZELAIC ACID
     Indication: Psoriasis
  5. PROPRANOLOL [Suspect]
     Active Substance: PROPRANOLOL HYDROCHLORIDE
     Indication: Psoriasis
     Dosage: DOSAGE : 80 MG EXTENDED RELEASE CAPSULES
  6. calcipotriene scalp solution [Concomitant]
     Indication: Psoriasis
     Dosage: DOSAGE : 0.005% SCALP SOLUTION

REACTIONS (2)
  - Therapeutic product ineffective [Unknown]
  - Product use in unapproved indication [Unknown]
